FAERS Safety Report 8600570-3 (Version None)
Quarter: 2012Q3

REPORT INFORMATION
  Report Type: 
  Country: None (occurrence: None)
  Receive Date: 20120808
  Receipt Date: 20120808
  Transmission Date: 20120928
  Serious: Yes (Hospitalization, Disabling, Other)
  Sender: FDA-Public Use
  Company Number: None

PATIENT
  Age: 58 Year
  Sex: Female
  Weight: 94.3482 kg

DRUGS (3)
  1. DOXEPIN [Suspect]
     Dates: start: 20120412
  2. DOXEPIN [Suspect]
     Indication: DEPRESSION
     Dosage: 1-2 CAPSULES AT BEDTIME
     Dates: start: 20120319
  3. DOXEPIN [Suspect]
     Indication: INSOMNIA
     Dosage: 1-2 CAPSULES AT BEDTIME
     Dates: start: 20120319

REACTIONS (11)
  - TREMOR [None]
  - MOOD SWINGS [None]
  - FALL [None]
  - SYNCOPE [None]
  - RASH [None]
  - BALANCE DISORDER [None]
  - MOVEMENT DISORDER [None]
  - ANKLE FRACTURE [None]
  - EYE PAIN [None]
  - MUSCLE TWITCHING [None]
  - PRURITUS [None]
